FAERS Safety Report 6038742-7 (Version None)
Quarter: 2009Q1

REPORT INFORMATION
  Report Type: 
  Country: None (occurrence: None)
  Receive Date: 20090115
  Receipt Date: 20081208
  Transmission Date: 20090719
  Serious: No
  Sender: FDA-Public Use
  Company Number: US-BAYER-200814804BCC

PATIENT
  Age: 72 Year
  Sex: Female
  Weight: 77 kg

DRUGS (7)
  1. ALEVE [Suspect]
     Indication: BACK PAIN
     Dosage: TOTAL DAILY DOSE: 220 MG  UNIT DOSE: 220 MG
     Route: 048
     Dates: start: 20081207
  2. GLIPIZIDE [Concomitant]
  3. METFORMIN [Concomitant]
  4. XALATAN [Concomitant]
  5. ASPIRIN [Concomitant]
  6. CARDIZEM [Concomitant]
  7. ALTACE [Concomitant]

REACTIONS (2)
  - RASH MACULAR [None]
  - SWELLING FACE [None]
